FAERS Safety Report 15885166 (Version 2)
Quarter: 2019Q1

REPORT INFORMATION
  Report Type: Report from Study
  Country: UG (occurrence: UG)
  Receive Date: 20190129
  Receipt Date: 20190214
  Transmission Date: 20190417
  Serious: Yes (Hospitalization, Other)
  Sender: FDA-Public Use
  Company Number: UG-VIIV HEALTHCARE LIMITED-UG2018GSK116300

PATIENT
  Age: 25 Year
  Sex: Female

DRUGS (4)
  1. COTRIMOXAZOLE [Concomitant]
     Active Substance: SULFAMETHOXAZOLE\TRIMETHOPRIM
     Dosage: 960 MG, QD
     Dates: start: 20180328
  2. DOLUTEGRAVIR [Suspect]
     Active Substance: DOLUTEGRAVIR
     Indication: HIV INFECTION
     Dosage: 50 MG, QD
     Route: 048
     Dates: start: 20180328
  3. LAMIVUDINE + TENOFOVIR DISOPROXIL FUMARATE [Concomitant]
     Active Substance: LAMIVUDINE\TENOFOVIR DISOPROXIL FUMARATE
     Indication: HIV INFECTION
     Dosage: 600 MG, QD
     Route: 048
     Dates: start: 20180328
  4. FEFOL [Concomitant]
     Active Substance: FERROUS SULFATE\FOLIC ACID

REACTIONS (2)
  - Abdominal abscess [Recovered/Resolved]
  - Postpartum sepsis [Recovered/Resolved]

NARRATIVE: CASE EVENT DATE: 20180527
